FAERS Safety Report 4708878-9 (Version None)
Quarter: 2005Q3

REPORT INFORMATION
  Report Type: 
  Country: None (occurrence: None)
  Receive Date: 20050705
  Receipt Date: 20050620
  Transmission Date: 20060218
  Serious: Yes (Hospitalization)
  Sender: FDA-Public Use
  Company Number: 2005FR-00054

PATIENT
  Age: 79 Year
  Sex: Female
  Weight: 8 kg

DRUGS (5)
  1. ASPIRIN [Suspect]
     Indication: PROPHYLAXIS
     Dosage: 75 MG, ORAL
     Route: 048
     Dates: end: 20050529
  2. SULINDAC [Concomitant]
  3. LOSARTAN [Concomitant]
  4. ATENOLOL [Concomitant]
  5. LEVOTHYROXINE [Concomitant]

REACTIONS (1)
  - GASTRIC ULCER HAEMORRHAGE [None]
